FAERS Safety Report 9914880 (Version 4)
Quarter: 2014Q2

REPORT INFORMATION
  Report Type: Spontaneous
  Country: US (occurrence: US)
  Receive Date: 20140220
  Receipt Date: 20140526
  Transmission Date: 20141212
  Serious: Yes (Other)
  Sender: FDA-Public Use
  Company Number: PHEH2014US003364

PATIENT
  Sex: Female

DRUGS (9)
  1. RECLAST [Suspect]
     Dosage: UKN
  2. RECLAST [Suspect]
     Dosage: UKN
     Route: 042
     Dates: start: 20140214
  3. TOPROL XL [Concomitant]
     Dosage: UKN
  4. LEVOXYL [Concomitant]
     Dosage: UKN
  5. PLAVIX [Concomitant]
     Dosage: UKN
  6. CRESTOR [Concomitant]
     Dosage: UKN
  7. DEXILANT [Concomitant]
     Dosage: UKN
  8. SINGULAIR [Concomitant]
     Dosage: UKN
  9. SPIRIVA [Concomitant]
     Dosage: UKN

REACTIONS (8)
  - Femur fracture [Unknown]
  - Gait disturbance [Unknown]
  - Fall [Unknown]
  - Pain in extremity [Unknown]
  - Pain [Unknown]
  - Crying [Unknown]
  - Dysstasia [Unknown]
  - Peripheral swelling [Unknown]
